FAERS Safety Report 21863081 (Version 1)
Quarter: 2023Q1

REPORT INFORMATION
  Report Type: Spontaneous
  Country: US (occurrence: US)
  Receive Date: 20230115
  Receipt Date: 20230115
  Transmission Date: 20230417
  Serious: No
  Sender: FDA-Public Use
  Company Number: US-SA-SAC20230112001342

PATIENT
  Age: 53 Year
  Sex: Female
  Weight: 81.6 kg

DRUGS (10)
  1. DUPIXENT [Suspect]
     Active Substance: DUPILUMAB
     Indication: Dermatitis atopic
     Dosage: 300 MG, QOW
     Route: 058
  2. DUPIXENT [Suspect]
     Active Substance: DUPILUMAB
     Indication: Asthma
  3. LEVOTHYROXINE [Concomitant]
     Active Substance: LEVOTHYROXINE
  4. MYRBETRIQ [Concomitant]
     Active Substance: MIRABEGRON
  5. OXYCODONE AND ACETAMINOPHEN [Concomitant]
     Active Substance: ACETAMINOPHEN\OXYCODONE HYDROCHLORIDE
  6. DICLOFENAC [Concomitant]
     Active Substance: DICLOFENAC
  7. CYCLOBENZAPRINE [Concomitant]
     Active Substance: CYCLOBENZAPRINE
  8. ALBUTEROL SULFATE [Concomitant]
     Active Substance: ALBUTEROL SULFATE
  9. DIAZEPAM [Concomitant]
     Active Substance: DIAZEPAM
  10. AUVI-Q [Concomitant]
     Active Substance: EPINEPHRINE

REACTIONS (3)
  - Road traffic accident [Unknown]
  - Skin laceration [Unknown]
  - Contusion [Unknown]

NARRATIVE: CASE EVENT DATE: 20230104
